FAERS Safety Report 6665238-1 (Version None)
Quarter: 2010Q1

REPORT INFORMATION
  Report Type: 
  Country: None (occurrence: None)
  Receive Date: 20100330
  Receipt Date: 20100318
  Transmission Date: 20100710
  Serious: Yes (Hospitalization)
  Sender: FDA-Public Use
  Company Number: 2009SP013918

PATIENT
  Age: 64 Year
  Sex: Female
  Weight: 58 kg

DRUGS (11)
  1. BOCEPREVIR (SCH-503034) [Suspect]
     Indication: HEPATITIS C
     Dosage: 800 MG; TID; PO
     Route: 048
     Dates: start: 20081201
  2. PEG-INTRON [Suspect]
     Indication: HEPATITIS C
     Dosage: 96 MCG; QW;SC
     Route: 058
     Dates: start: 20081103
  3. PARIET [Concomitant]
  4. UTROGESTRAN [Concomitant]
  5. ESTRADIOL [Concomitant]
  6. LAXARON [Concomitant]
  7. MOTILIUN [Concomitant]
  8. PARACETAMOL [Concomitant]
  9. REBETOL [Suspect]
     Indication: HEPATITIS C
     Dosage: 800 MG; QD; PO
     Route: 048
     Dates: start: 20081103
  10. DEXERYL [Concomitant]
  11. AERIUS [Concomitant]

REACTIONS (6)
  - ABDOMINAL PAIN [None]
  - ASTHENIA [None]
  - CONDITION AGGRAVATED [None]
  - FLATULENCE [None]
  - INTESTINAL FUNCTIONAL DISORDER [None]
  - IRRITABLE BOWEL SYNDROME [None]
